FAERS Safety Report 9387525 (Version 1)
Quarter: 2013Q3

REPORT INFORMATION
  Report Type: Spontaneous
  Country: AU (occurrence: AU)
  Receive Date: 20130708
  Receipt Date: 20130708
  Transmission Date: 20140515
  Serious: Yes (Hospitalization)
  Sender: FDA-Public Use
  Company Number: AU-PFIZER INC-2013198267

PATIENT
  Age: 5 Decade
  Sex: Female

DRUGS (1)
  1. LYRICA [Suspect]
     Indication: NEURALGIA
     Dosage: 75 UNIT UNKNOWN, 2X/DAY
     Route: 048

REACTIONS (1)
  - Swelling face [Recovered/Resolved]
